FAERS Safety Report 18231270 (Version 3)
Quarter: 2020Q3

REPORT INFORMATION
  Report Type: Spontaneous
  Country: JP (occurrence: JP)
  Receive Date: 20200904
  Receipt Date: 20200923
  Transmission Date: 20201103
  Serious: Yes (Other)
  Sender: FDA-Public Use
  Company Number: JP-GLAXOSMITHKLINE-JP2020174063

PATIENT
  Age: 79 Year
  Sex: Male

DRUGS (6)
  1. DAIKENCHUTO [Concomitant]
     Active Substance: HERBALS
     Dosage: UNK
     Route: 048
  2. AVOLVE [Suspect]
     Active Substance: DUTASTERIDE
     Indication: BENIGN PROSTATIC HYPERPLASIA
     Dosage: 0.5 MG, QD, IN THE MORNING
     Route: 048
     Dates: start: 20140608
  3. AVOLVE [Suspect]
     Active Substance: DUTASTERIDE
     Dosage: 0.5 MG, BID, AFTER BREAKFAST AND WHEN GOING OUT BEFORE NOON
     Route: 048
     Dates: start: 20200827, end: 20200827
  4. SILODOSIN. [Concomitant]
     Active Substance: SILODOSIN
     Indication: BENIGN PROSTATIC HYPERPLASIA
     Dosage: UNK
     Route: 048
  5. CILNIDIPINE TABLETS [Concomitant]
     Dosage: UNK
     Route: 048
  6. ROSUVASTATIN CALCIUM TABLETS [Concomitant]
     Active Substance: ROSUVASTATIN CALCIUM
     Dosage: UNK
     Route: 048

REACTIONS (2)
  - Accidental overdose [Unknown]
  - Loss of consciousness [Recovered/Resolved]

NARRATIVE: CASE EVENT DATE: 20200707
